FAERS Safety Report 4819524-8 (Version None)
Quarter: 2005Q4

REPORT INFORMATION
  Report Type: 
  Country: None (occurrence: None)
  Receive Date: 20051031
  Receipt Date: 20050923
  Transmission Date: 20060501
  Serious: No
  Sender: FDA-Public Use
  Company Number: CLOF-10105

PATIENT
  Age: 31 Year
  Sex: Female

DRUGS (1)
  1. CLOLAR [Suspect]
     Indication: ACUTE MYELOID LEUKAEMIA

REACTIONS (2)
  - RASH [None]
  - SKIN EXFOLIATION [None]
